FAERS Safety Report 25283914 (Version 1)
Quarter: 2025Q2

REPORT INFORMATION
  Report Type: Spontaneous
  Country: JP (occurrence: JP)
  Receive Date: 20250508
  Receipt Date: 20250508
  Transmission Date: 20250716
  Serious: Yes (Other)
  Sender: CSL BEHRING
  Company Number: JP-BEH-2025204324

PATIENT
  Age: 89 Year
  Sex: Male

DRUGS (4)
  1. KORSUVA [Suspect]
     Active Substance: DIFELIKEFALIN ACETATE
     Indication: Pruritus
     Route: 042
     Dates: start: 202402, end: 202407
  2. KORSUVA [Suspect]
     Active Substance: DIFELIKEFALIN ACETATE
     Route: 042
     Dates: start: 202410, end: 20250124
  3. ADALAT [Concomitant]
     Active Substance: NIFEDIPINE
  4. ASPIRIN [Concomitant]
     Active Substance: ASPIRIN

REACTIONS (4)
  - Fracture [Unknown]
  - Dizziness [Recovered/Resolved]
  - Balance disorder [Unknown]
  - Peripheral circulatory failure [Unknown]

NARRATIVE: CASE EVENT DATE: 20250101
